FAERS Safety Report 23300825 (Version 7)
Quarter: 2025Q2

REPORT INFORMATION
  Report Type: Report from Study
  Country: GB (occurrence: GB)
  Receive Date: 20231215
  Receipt Date: 20250527
  Transmission Date: 20250717
  Serious: Yes (Other)
  Sender: UCB
  Company Number: GB-UCBSA-2023043732

PATIENT
  Sex: Female
  Weight: 72.9 kg

DRUGS (20)
  1. BIMEKIZUMAB [Suspect]
     Active Substance: BIMEKIZUMAB
     Indication: Psoriasis
     Dosage: 320 MILLIGRAM, EV 4 WEEKS
     Route: 058
     Dates: start: 20230810
  2. BIMEKIZUMAB [Suspect]
     Active Substance: BIMEKIZUMAB
     Dosage: 320 MILLIGRAM, EV 8 WEEKS
     Route: 058
     Dates: start: 2023, end: 20240521
  3. OXYCODONE HYDROCHLORIDE [Concomitant]
     Active Substance: OXYCODONE HYDROCHLORIDE
     Indication: Pain
     Dosage: 10 MILLIGRAM, 6X/DAY (4 HRLY)
     Route: 048
     Dates: start: 20230404
  4. OXYCODONE HYDROCHLORIDE [Concomitant]
     Active Substance: OXYCODONE HYDROCHLORIDE
     Route: 048
  5. RAMIPRIL [Concomitant]
     Active Substance: RAMIPRIL
     Indication: Hypertension
     Dosage: 2.5 MILLIGRAM, DAILY
     Route: 048
     Dates: start: 20230510
  6. AMLODIPINE [Concomitant]
     Active Substance: AMLODIPINE BESYLATE
     Indication: Hypertension
     Dosage: 10 MILLIGRAM, ONCE DAILY (QD)
     Route: 048
     Dates: start: 20230404
  7. AMLODIPINE [Concomitant]
     Active Substance: AMLODIPINE BESYLATE
     Indication: Hypertension
     Dosage: 2.5 MILLIGRAM, ONCE DAILY (QD)
     Route: 048
     Dates: start: 20230510
  8. MOMETASONE FUROATE [Concomitant]
     Active Substance: MOMETASONE FUROATE
     Indication: Nasal congestion
     Dosage: 100 MICROGRAM, ONCE DAILY (QD) (SPRAY, METERED)
     Route: 045
     Dates: start: 20231206
  9. ADALIMUMAB [Concomitant]
     Active Substance: ADALIMUMAB
     Indication: Product used for unknown indication
     Dates: start: 20230108, end: 20230712
  10. ACETAMINOPHEN\BENZALKONIUM\DICHLORALPHENAZONE\DIMETHICONE\HYDROCORTISO [Concomitant]
     Active Substance: ACETAMINOPHEN\BENZALKONIUM\DICHLORALPHENAZONE\DIMETHICONE\HYDROCORTISONE\ISOMETHEPTENE\NYSTATIN
     Indication: Skin disorder
     Dosage: UNK, 2X/DAY (BID)
     Route: 061
     Dates: start: 20240216, end: 20240223
  11. CHLORAMPHENICOL [Concomitant]
     Active Substance: CHLORAMPHENICOL
     Indication: Conjunctivitis
     Dosage: 0.5 PERCENT, ONCE DAILY (QD)
     Route: 047
     Dates: start: 20240308, end: 20240315
  12. PROMETHAZINE HYDROCHLORIDE [Concomitant]
     Active Substance: PROMETHAZINE HYDROCHLORIDE
     Indication: Psoriasis
     Dosage: 25 MILLIGRAM, ONCE DAILY (QD) AT NIGHT
     Route: 048
     Dates: start: 20220425
  13. PROMETHAZINE HYDROCHLORIDE [Concomitant]
     Active Substance: PROMETHAZINE HYDROCHLORIDE
     Indication: Pruritus
  14. PREGABALIN [Concomitant]
     Active Substance: PREGABALIN
     Indication: Pain
     Dosage: 25 MILLIGRAM, 2X/DAY (BID)
     Route: 048
     Dates: start: 20230404
  15. PREGABALIN [Concomitant]
     Active Substance: PREGABALIN
     Dosage: 50 MILLIGRAM, ONCE DAILY (QD)
     Route: 048
  16. DULOXETINE [Concomitant]
     Active Substance: DULOXETINE
     Indication: Neuralgia
     Dosage: 90 MILLIGRAM, DAILY
     Route: 048
     Dates: start: 20171207
  17. DULOXETINE [Concomitant]
     Active Substance: DULOXETINE
     Indication: Pain
  18. OMEPRAZOLE [Concomitant]
     Active Substance: OMEPRAZOLE
     Indication: Oesophagitis
     Dosage: 20 MILLIGRAM, 2X/DAY (BID)
     Route: 048
     Dates: start: 20230825, end: 20231130
  19. OMEPRAZOLE [Concomitant]
     Active Substance: OMEPRAZOLE
     Indication: Gastrooesophageal reflux disease
     Route: 048
     Dates: start: 20231201
  20. OMEPRAZOLE [Concomitant]
     Active Substance: OMEPRAZOLE
     Dosage: 40 MILLIGRAM, DAILY
     Route: 048
     Dates: start: 20231201, end: 20240307

REACTIONS (12)
  - Oesophagitis [Recovered/Resolved]
  - Pseudomonas infection [Unknown]
  - Nasal congestion [Not Recovered/Not Resolved]
  - Bacterial infection [Unknown]
  - Ear infection [Unknown]
  - Rhinorrhoea [Unknown]
  - Oropharyngeal pain [Unknown]
  - Gastrooesophageal reflux disease [Not Recovered/Not Resolved]
  - Hiatus hernia [Not Recovered/Not Resolved]
  - Foot fracture [Recovering/Resolving]
  - Conjunctivitis [Recovered/Resolved]
  - Urinary tract infection [Recovered/Resolved]

NARRATIVE: CASE EVENT DATE: 20230101
